FAERS Safety Report 4698489-6 (Version None)
Quarter: 2005Q2

REPORT INFORMATION
  Report Type: 
  Country: None (occurrence: None)
  Receive Date: 20050621
  Receipt Date: 20050604
  Transmission Date: 20051028
  Serious: Yes (Life-Threatening, Hospitalization)
  Sender: FDA-Public Use
  Company Number: DE_050616096

PATIENT
  Age: 75 Year
  Sex: Male

DRUGS (1)
  1. GEMZAR [Suspect]
     Indication: NON-SMALL CELL LUNG CANCER
     Dosage: 1000 MG/M2
     Dates: start: 20050101, end: 20050101

REACTIONS (3)
  - ALVEOLITIS [None]
  - PNEUMOCYSTIS JIROVECI PNEUMONIA [None]
  - THERAPY NON-RESPONDER [None]
